FAERS Safety Report 8483022-3 (Version None)
Quarter: 2012Q2

REPORT INFORMATION
  Report Type: 
  Country: None (occurrence: None)
  Receive Date: 20120625
  Receipt Date: 20120619
  Transmission Date: 20120825
  Serious: Yes (Hospitalization, Disabling)
  Sender: FDA-Public Use
  Company Number: WAES 1112USA02991

PATIENT
  Age: 69 Year
  Sex: Male

DRUGS (29)
  1. ACETAMINOPHEN [Concomitant]
  2. DAI-KENCHU-TO [Concomitant]
  3. MOBIC [Concomitant]
  4. LANSOPRAZOLE [Concomitant]
  5. HIRUDOID [Concomitant]
  6. LAC-B [Concomitant]
  7. MG OXIDE [Concomitant]
  8. PRORENAL [Concomitant]
  9. ZOMETA [Concomitant]
  10. ACETAMINOPHEN [Suspect]
     Indication: METASTATIC RENAL CELL CARCINOMA
     Dosage: 5 MG/BID
     Route: 048
     Dates: start: 20101116, end: 20110714
  11. ACETAMINOPHEN [Suspect]
     Indication: METASTATIC RENAL CELL CARCINOMA
     Dosage: 5 MG/BID
     Route: 048
     Dates: start: 20110729, end: 20110818
  12. ACETAMINOPHEN [Suspect]
     Indication: METASTATIC RENAL CELL CARCINOMA
     Dosage: 5 MG/BID
     Route: 048
     Dates: start: 20110827, end: 20110926
  13. GASMOTIN [Concomitant]
  14. DECADRON [Suspect]
     Indication: PYREXIA
     Dosage: 0.5 MG/DAILY 1 MG/DAILY 2 MG/DAILY
     Route: 048
     Dates: start: 20111014, end: 20111028
  15. DECADRON [Suspect]
     Indication: PYREXIA
     Dosage: 0.5 MG/DAILY 1 MG/DAILY 2 MG/DAILY
     Route: 048
     Dates: start: 20110618, end: 20110824
  16. DECADRON [Suspect]
     Indication: PYREXIA
     Dosage: 0.5 MG/DAILY 1 MG/DAILY 2 MG/DAILY
     Route: 048
     Dates: start: 20110825, end: 20111013
  17. DECADRON [Suspect]
     Indication: PYREXIA
     Dosage: 0.5 MG/DAILY 1 MG/DAILY 2 MG/DAILY
     Route: 048
     Dates: start: 20111029
  18. BLINDED THERAPY [Suspect]
     Indication: RENAL CELL CARCINOMA
     Route: 048
     Dates: start: 20101214, end: 20110714
  19. MG OXIDE [Concomitant]
  20. PURSENNID (SENNA) [Concomitant]
  21. TELEMINSOFT [Concomitant]
  22. TIZANIDINE HYDROCHLORIDE [Concomitant]
  23. MUCOSTA [Concomitant]
  24. NORVASC [Concomitant]
  25. OLMESARTAN MEDOXOMIL [Concomitant]
  26. OXYCODONE HCL [Suspect]
     Indication: PAIN
     Dosage: 5 MG/PRN 10 MG/PRN
     Dates: start: 20110506
  27. OXYCODONE HCL [Suspect]
     Indication: PAIN
     Dosage: 5 MG/PRN 10 MG/PRN
     Dates: start: 20101111, end: 20110505
  28. OXYCONTIN [Suspect]
     Indication: PAIN
     Dosage: 40 MG/BID 50 MG/BID
     Route: 048
     Dates: start: 20110507, end: 20110616
  29. OXYCONTIN [Suspect]
     Indication: PAIN
     Dosage: 40 MG/BID 50 MG/BID
     Route: 048
     Dates: start: 20110617

REACTIONS (5)
  - VOMITING [None]
  - ABDOMINAL DISTENSION [None]
  - EXTRADURAL ABSCESS [None]
  - ENTEROCOLITIS [None]
  - PYREXIA [None]
